FAERS Safety Report 24267404 (Version 1)
Quarter: 2024Q3

REPORT INFORMATION
  Report Type: Spontaneous
  Country: CN (occurrence: CN)
  Receive Date: 20240830
  Receipt Date: 20240830
  Transmission Date: 20241016
  Serious: Yes (Other)
  Sender: Vantive US Healthcare
  Company Number: CN-VANTIVE-2024VAN019291

PATIENT

DRUGS (1)
  1. CALCIUM CHLORIDE\DEXTROSE\MAGNESIUM CHLORIDE\SODIUM BICARBONATE\SODIUM [Suspect]
     Active Substance: CALCIUM CHLORIDE\DEXTROSE\MAGNESIUM CHLORIDE\SODIUM BICARBONATE\SODIUM CHLORIDE
     Indication: Peritoneal dialysis
     Dosage: UNK
     Route: 033
     Dates: start: 20240822

REACTIONS (3)
  - Ultrafiltration failure [Unknown]
  - Peritoneal dialysis complication [Unknown]
  - Device issue [Unknown]

NARRATIVE: CASE EVENT DATE: 20240822
